APPROVED DRUG PRODUCT: LORAZEPAM
Active Ingredient: LORAZEPAM
Strength: 2MG
Dosage Form/Route: TABLET;ORAL
Application: A076045 | Product #003 | TE Code: AB
Applicant: SUN PHARMACEUTICAL INDUSTRIES LTD
Approved: Aug 29, 2001 | RLD: No | RS: No | Type: RX